FAERS Safety Report 16560625 (Version 2)
Quarter: 2022Q2

REPORT INFORMATION
  Report Type: Spontaneous
  Country: IT (occurrence: IT)
  Receive Date: 20190711
  Receipt Date: 20220422
  Transmission Date: 20220720
  Serious: Yes (Hospitalization)
  Sender: FDA-Public Use
  Company Number: IT-TEVA-2019-IT-1074645

PATIENT
  Age: 48 Year
  Sex: Male

DRUGS (8)
  1. PREDNISONE [Suspect]
     Active Substance: PREDNISONE
     Indication: Psoriatic arthropathy
     Dosage: 25 MILLIGRAM DAILY;
     Route: 065
  2. METHOTREXATE [Suspect]
     Active Substance: METHOTREXATE
     Indication: Psoriatic arthropathy
     Route: 065
     Dates: end: 2016
  3. CYCLOSPORINE [Suspect]
     Active Substance: CYCLOSPORINE
     Indication: Psoriatic arthropathy
     Dosage: 2.5 MG/KG DAILY;
     Route: 065
     Dates: start: 2014, end: 2016
  4. ADALIMUMAB [Suspect]
     Active Substance: ADALIMUMAB
     Indication: Psoriatic arthropathy
     Dosage: AT FIRST ADMINISTRATION
     Route: 065
     Dates: start: 2016
  5. ADALIMUMAB [Suspect]
     Active Substance: ADALIMUMAB
     Indication: Psoriatic arthropathy
     Route: 065
     Dates: start: 2016
  6. APREMILAST [Suspect]
     Active Substance: APREMILAST
     Indication: Psoriatic arthropathy
     Dosage: 60 MILLIGRAM DAILY;
     Route: 048
     Dates: end: 201709
  7. ETHAMBUTOL [Suspect]
     Active Substance: ETHAMBUTOL HYDROCHLORIDE
     Dosage: 1200 MILLIGRAM DAILY;
     Route: 065
     Dates: start: 201709, end: 201711
  8. MEGLUMINE ANTIMONIATE [Concomitant]
     Active Substance: MEGLUMINE ANTIMONIATE
     Indication: Psoriatic arthropathy
     Route: 026

REACTIONS (6)
  - Cutaneous leishmaniasis [Recovered/Resolved]
  - Pneumonia [Recovered/Resolved]
  - Dizziness [Unknown]
  - Lung consolidation [Recovered/Resolved]
  - Lymphadenopathy [Recovered/Resolved]
  - Mycobacterium fortuitum infection [Recovered/Resolved]

NARRATIVE: CASE EVENT DATE: 20170201
